FAERS Safety Report 23920602 (Version 3)
Quarter: 2024Q2

REPORT INFORMATION
  Report Type: Report from Study
  Country: CA (occurrence: CA)
  Receive Date: 20240530
  Receipt Date: 20240627
  Transmission Date: 20240716
  Serious: Yes (Other)
  Sender: FDA-Public Use
  Company Number: CA-002147023-NVSC2024CA113235

PATIENT
  Age: 55 Year
  Sex: Female

DRUGS (7)
  1. GILENYA [Suspect]
     Active Substance: FINGOLIMOD HYDROCHLORIDE
     Indication: Relapsing-remitting multiple sclerosis
     Dosage: UNK
     Route: 065
     Dates: start: 2016
  2. GILENYA [Suspect]
     Active Substance: FINGOLIMOD HYDROCHLORIDE
     Dosage: 0.5 MG, QD (TAKE ONE CAPSULE ONE TIME PER DAY REGULARLY PMS)
     Route: 065
     Dates: start: 20230725, end: 20240520
  3. CANDESARTAN [Concomitant]
     Active Substance: CANDESARTAN
     Indication: Product used for unknown indication
     Dosage: 8 MG, QD (1 TABLET PER DAY BEFORE BEDTIME)
     Route: 065
     Dates: start: 20240121, end: 20240523
  4. SODIUM CHLORIDE [Concomitant]
     Active Substance: SODIUM CHLORIDE
     Indication: Product used for unknown indication
     Dosage: 0.9 % (1 SPRAY IN EACH NOSTRIL 4 TIMES A DAY)
     Route: 045
     Dates: start: 20240212, end: 20240308
  5. FLUTICASONE PROPIONATE [Concomitant]
     Active Substance: FLUTICASONE PROPIONATE
     Indication: Product used for unknown indication
     Dosage: 50 UG (2 SPRAYS IN EACH NOSTRIL ONCE A DAY IN THE MORNING)
     Route: 045
     Dates: start: 20231117, end: 20231117
  6. IPRATROPIUM [Concomitant]
     Active Substance: IPRATROPIUM
     Indication: Product used for unknown indication
     Dosage: (1 SPRAY IN EACH NOSTRIL 2 TIMES A DAY)
     Route: 045
     Dates: start: 20240212
  7. DICLOFENAC DIETHYLAMINE [Concomitant]
     Active Substance: DICLOFENAC DIETHYLAMINE
     Indication: Product used for unknown indication
     Dosage: UNK
     Route: 061
     Dates: start: 20231129, end: 20231129

REACTIONS (3)
  - Decreased immune responsiveness [Unknown]
  - Lymphocyte count abnormal [Recovering/Resolving]
  - Drug intolerance [Unknown]

NARRATIVE: CASE EVENT DATE: 20240407
